FAERS Safety Report 18541532 (Version 1)
Quarter: 2020Q4

REPORT INFORMATION
  Report Type: Report from Study
  Country: US (occurrence: US)
  Receive Date: 20201124
  Receipt Date: 20201124
  Transmission Date: 20210114
  Serious: Yes (Death)
  Sender: FDA-Public Use
  Company Number: US-ASTRAZENECA-2020SF54242

PATIENT
  Sex: Male

DRUGS (1)
  1. LYNPARZA [Suspect]
     Active Substance: OLAPARIB
     Indication: BONE CANCER
     Dosage: TABLETS BY MOUTH ONCE A DAY ON MONDAY,TUESDAY, WEDNESDAY + THURSDAY, AND 1 TABLET ONCE A DAY ON F...
     Route: 048
     Dates: start: 20201030

REACTIONS (1)
  - Death [Fatal]
